FAERS Safety Report 8925811 (Version 1)
Quarter: 2012Q4

REPORT INFORMATION
  Report Type: 
  Country: CA (occurrence: CA)
  Receive Date: 20121126
  Receipt Date: 20121126
  Transmission Date: 20130627
  Serious: Yes (Hospitalization, Other)
  Sender: FDA-Public Use
  Company Number: CA-ELI_LILLY_AND_COMPANY-CA201211005290

PATIENT
  Age: 88 Year
  Sex: Female

DRUGS (11)
  1. FORTEO [Suspect]
     Indication: OSTEOPOROSIS
     Dosage: 20 ug, qd
     Route: 058
     Dates: start: 20120214, end: 20120628
  2. DILTIAZEM [Concomitant]
  3. CALCIUM [Concomitant]
  4. PANTOLOC                           /01263204/ [Concomitant]
  5. ATENOLOL [Concomitant]
  6. PLAVIX [Concomitant]
  7. ASAPHEN [Concomitant]
  8. CRESTOR [Concomitant]
  9. PRESERVISION EYE VITAMIN AND MINERAL SUPPL. [Concomitant]
  10. NITROTAB [Concomitant]
     Dosage: 1d/f, PRN
  11. D-TABS [Concomitant]

REACTIONS (3)
  - Hip fracture [Not Recovered/Not Resolved]
  - Pelvic fracture [Not Recovered/Not Resolved]
  - Accident [Not Recovered/Not Resolved]
